FAERS Safety Report 18454450 (Version 2)
Quarter: 2021Q2

REPORT INFORMATION
  Report Type: Spontaneous
  Country: BR (occurrence: BR)
  Receive Date: 20201102
  Receipt Date: 20210419
  Transmission Date: 20210717
  Serious: Yes (Other)
  Sender: FDA-Public Use
  Company Number: BR-BAYER-2020-229501

PATIENT
  Age: 63 Year
  Sex: Male
  Weight: 53 kg

DRUGS (12)
  1. STIVARGA [Suspect]
     Active Substance: REGORAFENIB
     Indication: ADENOCARCINOMA OF COLON
     Dosage: 3 TABLETS FOR 2 WEEKS AND 2 TABLETS FOR 1 WEEK
     Route: 048
     Dates: start: 20161202, end: 20170103
  2. STIVARGA [Suspect]
     Active Substance: REGORAFENIB
     Indication: ADENOCARCINOMA OF COLON
     Dosage: 80 MG, QD, FOR 14 DAYS AND 7 DAYS OFF
     Route: 048
     Dates: start: 20181226, end: 20190530
  3. STIVARGA [Suspect]
     Active Substance: REGORAFENIB
     Indication: ADENOCARCINOMA OF COLON
     Dosage: 80 MG, QD FOR 14 DAYS AND 10 DAYS OFF
     Route: 048
     Dates: start: 20190530
  4. STIVARGA [Suspect]
     Active Substance: REGORAFENIB
     Indication: ADENOCARCINOMA OF COLON
     Dosage: 120 MG, QD
     Route: 048
     Dates: start: 20160807, end: 20161003
  5. STIVARGA [Suspect]
     Active Substance: REGORAFENIB
     Indication: METASTASES TO LIVER
     Dosage: 120 MG, QD
     Route: 048
     Dates: start: 20161003, end: 20161103
  6. STIVARGA [Suspect]
     Active Substance: REGORAFENIB
     Indication: ADENOCARCINOMA OF COLON
     Dosage: 80 MG, QD
     Route: 048
     Dates: start: 20170518, end: 20171222
  7. CREON [Concomitant]
     Active Substance: PANCRELIPASE AMYLASE\PANCRELIPASE LIPASE\PANCRELIPASE PROTEASE
     Dosage: UNK
     Dates: start: 201706
  8. STIVARGA [Suspect]
     Active Substance: REGORAFENIB
     Indication: ADENOCARCINOMA OF COLON
     Dosage: 3 TABLETS/ 2 TABLETS
     Route: 048
     Dates: start: 20170103, end: 20170403
  9. SUSTAGEN [Concomitant]
     Dosage: UNK
     Dates: start: 201801
  10. STIVARGA [Suspect]
     Active Substance: REGORAFENIB
     Indication: ADENOCARCINOMA OF COLON
     Dosage: 120 MG, QD
     Route: 048
     Dates: start: 20161103, end: 20161202
  11. STIVARGA [Suspect]
     Active Substance: REGORAFENIB
     Indication: ADENOCARCINOMA OF COLON
     Dosage: 80 MG, QD
     Route: 048
     Dates: start: 20180102, end: 20180521
  12. SELOZOK [Concomitant]
     Active Substance: METOPROLOL SUCCINATE

REACTIONS (17)
  - Stomatitis [None]
  - Gastrointestinal inflammation [None]
  - Fatigue [Not Recovered/Not Resolved]
  - Stomatitis [None]
  - Diarrhoea [None]
  - Diarrhoea [Not Recovered/Not Resolved]
  - Blister [None]
  - Blood thyroid stimulating hormone increased [Recovered/Resolved]
  - Stomatitis [None]
  - Weight fluctuation [None]
  - Paronychia [None]
  - Off label use [None]
  - Hypertension [Not Recovered/Not Resolved]
  - Weight decreased [Recovered/Resolved]
  - Hypercholesterolaemia [None]
  - Atrial fibrillation [None]
  - Diarrhoea [Not Recovered/Not Resolved]

NARRATIVE: CASE EVENT DATE: 20160807
